FAERS Safety Report 5212289-X (Version None)
Quarter: 2006Q4

REPORT INFORMATION
  Report Type: 
  Country: None (occurrence: None)
  Receive Date: 20061130
  Receipt Date: 20060315
  Transmission Date: 20070319
  Serious: Yes (Hospitalization, Other)
  Sender: FDA-Public Use
  Company Number: WAES 0603USA02494

PATIENT
  Age: 67 Year
  Sex: Male
  Weight: 74.3899 kg

DRUGS (1)
  1. FOSAMAX [Suspect]
     Indication: OSTEOPENIA
     Dosage: UNK/UNK/PO
     Route: 048
     Dates: start: 20030827, end: 20060101

REACTIONS (2)
  - ADVERSE EVENT [None]
  - OSTEONECROSIS [None]
